FAERS Safety Report 15116391 (Version 1)
Quarter: 2018Q3

REPORT INFORMATION
  Report Type: Spontaneous
  Country: LT (occurrence: LT)
  Receive Date: 20180706
  Receipt Date: 20180706
  Transmission Date: 20181010
  Serious: Yes (Life-Threatening, Hospitalization)
  Sender: FDA-Public Use
  Company Number: LT-TEVA-2018-LT-922448

PATIENT
  Age: 79 Year
  Sex: Female

DRUGS (3)
  1. BETAHISTIN [Suspect]
     Active Substance: BETAHISTINE
     Route: 048
     Dates: start: 20180519, end: 20180519
  2. RAMIPRIL. [Suspect]
     Active Substance: RAMIPRIL
     Route: 048
     Dates: start: 20180519, end: 20180519
  3. LERCANIDIPINE [Suspect]
     Active Substance: LERCANIDIPINE
     Route: 048
     Dates: start: 20180519, end: 20180519

REACTIONS (2)
  - Somnolence [Recovered/Resolved]
  - Poisoning [Recovered/Resolved]

NARRATIVE: CASE EVENT DATE: 20180519
